FAERS Safety Report 25758195 (Version 1)
Quarter: 2025Q3

REPORT INFORMATION
  Report Type: Report from Study
  Country: US (occurrence: US)
  Receive Date: 20250904
  Receipt Date: 20250904
  Transmission Date: 20251020
  Serious: Yes (Other)
  Sender: TAKEDA
  Company Number: US-TAKEDA-US201945949

PATIENT
  Age: 44 Year
  Sex: Female

DRUGS (13)
  1. TEDUGLUTIDE [Suspect]
     Active Substance: TEDUGLUTIDE
     Indication: Short-bowel syndrome
     Dosage: 4.32 MILLIGRAM, QD
     Dates: start: 20181128, end: 201905
  2. TEDUGLUTIDE [Suspect]
     Active Substance: TEDUGLUTIDE
     Dosage: 4.38 MILLIGRAM, QD
     Dates: start: 201905, end: 202006
  3. TEDUGLUTIDE [Suspect]
     Active Substance: TEDUGLUTIDE
     Dosage: 4.57 MILLIGRAM, QD
     Dates: start: 202006, end: 202103
  4. TEDUGLUTIDE [Suspect]
     Active Substance: TEDUGLUTIDE
     Dosage: 4.6 MILLIGRAM, 4/WEEK
     Dates: start: 202103, end: 20210920
  5. LEVOTHYROXINE [Concomitant]
     Active Substance: LEVOTHYROXINE
     Indication: Thyroid neoplasm
     Dosage: UNK UNK, QD
     Dates: start: 20211213, end: 20220120
  6. LEVOTHYROXINE [Concomitant]
     Active Substance: LEVOTHYROXINE
     Dosage: UNK UNK, QD
     Dates: start: 20220224
  7. ENOXAPARIN [Concomitant]
     Active Substance: ENOXAPARIN
     Indication: Vascular device infection
  8. FLUCONAZOLE [Concomitant]
     Active Substance: FLUCONAZOLE
     Indication: Vascular device infection
     Dates: start: 20200707, end: 20200721
  9. LOPERAMIDE [Concomitant]
     Active Substance: LOPERAMIDE
     Indication: Diarrhoea
     Dosage: UNK UNK, BID
     Dates: start: 20180501
  10. ONDANSETRON [Concomitant]
     Active Substance: ONDANSETRON
     Indication: Nausea
  11. COUMADIN [Concomitant]
     Active Substance: WARFARIN SODIUM
     Indication: Hysteroscopy
     Dosage: UNK UNK, QD
     Dates: start: 20190702
  12. COUMADIN [Concomitant]
     Active Substance: WARFARIN SODIUM
     Indication: Thrombosis
  13. SIMETHICONE (DIMETHICONE) [Concomitant]
     Active Substance: DIMETHICONE
     Indication: Abdominal distension

REACTIONS (4)
  - Huerthle cell carcinoma [Recovered/Resolved]
  - Thyroid neoplasm [Recovered/Resolved]
  - Vaginal haemorrhage [Recovered/Resolved]
  - Human papilloma virus test positive [Recovered/Resolved]

NARRATIVE: CASE EVENT DATE: 20190301
